FAERS Safety Report 4808959-5 (Version None)
Quarter: 2005Q4

REPORT INFORMATION
  Report Type: 
  Country: None (occurrence: None)
  Receive Date: 20051025
  Receipt Date: 20051012
  Transmission Date: 20060501
  Serious: Yes (Hospitalization)
  Sender: FDA-Public Use
  Company Number: US-ROCHE-421084

PATIENT
  Age: 52 Year
  Sex: Female
  Weight: 64 kg

DRUGS (6)
  1. PEG-INTERFERON ALFA 2A (RO 25-8310) [Suspect]
     Dosage: TAKEN EVERY WEEK. FORM: INJECTABLE SOLUTION.
     Route: 058
     Dates: start: 20050531
  2. RIBAVIRIN [Suspect]
     Route: 048
     Dates: start: 20050531
  3. ZOVIRAX [Concomitant]
     Route: 048
     Dates: start: 19990615
  4. ONE A DAY [Concomitant]
     Route: 048
     Dates: start: 20000615
  5. HYDROCORTISONE CREAM [Concomitant]
     Dosage: TAKEN AS NEEDED.
     Route: 061
  6. IBUPROFEN [Concomitant]
     Dosage: TAKEN AS NEEDED.

REACTIONS (3)
  - ANAEMIA [None]
  - DIABETES MELLITUS [None]
  - DIABETIC KETOACIDOSIS [None]
